FAERS Safety Report 8231105-5 (Version None)
Quarter: 2012Q1

REPORT INFORMATION
  Report Type: 
  Country: None (occurrence: None)
  Receive Date: 20120322
  Receipt Date: 20120322
  Transmission Date: 20120608
  Serious: Yes (Hospitalization)
  Sender: FDA-Public Use
  Company Number: None

PATIENT
  Sex: Male
  Weight: 61.4 kg

DRUGS (2)
  1. CAPECITABINE [Concomitant]
     Indication: HEPATIC CANCER STAGE IV
     Dosage: 1000MG
     Route: 048
     Dates: start: 20120223, end: 20120319
  2. SORAFENIB [Suspect]
     Indication: HEPATIC CANCER STAGE IV
     Dosage: 400.0 MG
     Route: 048
     Dates: start: 20120223, end: 20120319

REACTIONS (1)
  - DEEP VEIN THROMBOSIS [None]
